FAERS Safety Report 17918988 (Version 1)
Quarter: 2020Q2

REPORT INFORMATION
  Report Type: Spontaneous
  Country: DE (occurrence: DE)
  Receive Date: 20200619
  Receipt Date: 20200619
  Transmission Date: 20200714
  Serious: Yes (Hospitalization)
  Sender: FDA-Public Use
  Company Number: DE-009507513-2006DEU006434

PATIENT
  Age: 63 Year
  Sex: Male

DRUGS (2)
  1. DESLORATADINE. [Suspect]
     Active Substance: DESLORATADINE
     Dosage: 2.5 MG, 1-0-0-0
     Route: 060
  2. IBUPROFEN. [Concomitant]
     Active Substance: IBUPROFEN
     Dosage: 400 MG, 2-2-0-0

REACTIONS (3)
  - Dyspnoea [Recovered/Resolved]
  - Oral dysaesthesia [Recovered/Resolved]
  - Cough [Recovered/Resolved]
